FAERS Safety Report 4644952-3 (Version None)
Quarter: 2005Q2

REPORT INFORMATION
  Report Type: 
  Country: None (occurrence: None)
  Receive Date: 20050422
  Receipt Date: 20050411
  Transmission Date: 20051028
  Serious: Yes (Other)
  Sender: FDA-Public Use
  Company Number: 2005057597

PATIENT
  Age: 68 Year
  Sex: Male
  Weight: 78.4723 kg

DRUGS (4)
  1. CELEBREX [Suspect]
     Indication: ARTHRITIS
     Dosage: 1 IN 1 D), ORAL
     Route: 048
     Dates: end: 20040101
  2. BEXTRA [Suspect]
     Indication: ARTHRITIS
     Dates: start: 20040101
  3. ROFECOXIB [Suspect]
     Indication: ARTHRITIS
  4. CETIRIZINE HYDROHCLORIDE (CETIRIZINE HYDROCHLORIDE) [Concomitant]

REACTIONS (5)
  - BLOOD PRESSURE INCREASED [None]
  - DYSPEPSIA [None]
  - FEELING ABNORMAL [None]
  - HAEMATOCHEZIA [None]
  - HEADACHE [None]
